FAERS Safety Report 9981202 (Version 1)
Quarter: 2014Q1

REPORT INFORMATION
  Report Type: Spontaneous
  Country: US (occurrence: None)
  Receive Date: 20140306
  Receipt Date: 20140306
  Transmission Date: 20141002
  Serious: Yes (Other)
  Sender: FDA-Public Use
  Company Number: None

PATIENT
  Age: 38 Year
  Sex: Female
  Weight: 77.11 kg

DRUGS (1)
  1. CIPRO [Suspect]
     Indication: POSTOPERATIVE CARE
     Dosage: 10 PILLS TWICE DAILY TAKEN BY MOUTH
     Route: 048
     Dates: start: 20140218, end: 20140228

REACTIONS (6)
  - Muscle twitching [None]
  - Headache [None]
  - Muscular weakness [None]
  - Fatigue [None]
  - Nerve injury [None]
  - Feeling abnormal [None]
